FAERS Safety Report 9180608 (Version 2)
Quarter: 2013Q2

REPORT INFORMATION
  Report Type: Spontaneous
  Country: JP (occurrence: None)
  Receive Date: 20130320
  Receipt Date: 20130507
  Transmission Date: 20140414
  Serious: Yes (Life-Threatening, Hospitalization, Disabling)
  Sender: FDA-Public Use
  Company Number: ABR_00857_2013

PATIENT
  Age: 48 Year
  Sex: Female
  Weight: 49.8 kg

DRUGS (1)
  1. GLIADEL [Suspect]
     Indication: MALIGNANT GLIOMA
     Dosage: 61.6 MG 1X INTRACEREBRAL
     Dates: start: 20130124, end: 20130124

REACTIONS (14)
  - Incision site infection [None]
  - Intracranial hypotension [None]
  - Folliculitis [None]
  - Tumour haemorrhage [None]
  - Staphylococcal infection [None]
  - Meningitis [None]
  - Encephalitis [None]
  - Convulsion [None]
  - Impaired healing [None]
  - Post procedural complication [None]
  - Brain oedema [None]
  - Hydrocephalus [None]
  - Post procedural haemorrhage [None]
  - Fall [None]
